FAERS Safety Report 6927615-0 (Version None)
Quarter: 2010Q3

REPORT INFORMATION
  Report Type: 
  Country: None (occurrence: None)
  Receive Date: 20100817
  Receipt Date: 20100803
  Transmission Date: 20110219
  Serious: Yes (Hospitalization, Other)
  Sender: FDA-Public Use
  Company Number: PHHY2010MX51733

PATIENT
  Sex: Male

DRUGS (1)
  1. SANDOSTATIN [Suspect]
     Dosage: 0.05 MG/1 ML
     Route: 042
     Dates: start: 20100701

REACTIONS (4)
  - LARYNGEAL CANCER [None]
  - PERITONITIS [None]
  - POST PROCEDURAL COMPLICATION [None]
  - SURGERY [None]
